FAERS Safety Report 6868765-7 (Version None)
Quarter: 2010Q3

REPORT INFORMATION
  Report Type: 
  Country: None (occurrence: None)
  Receive Date: 20100722
  Receipt Date: 20080625
  Transmission Date: 20110219
  Serious: No
  Sender: FDA-Public Use
  Company Number: US-PFIZER INC-2008053079

PATIENT
  Sex: Female
  Weight: 61.23 kg

DRUGS (10)
  1. CHANTIX [Suspect]
     Indication: SMOKING CESSATION THERAPY
     Dates: start: 20080624
  2. WELLBUTRIN [Concomitant]
  3. IBUPROFEN [Concomitant]
  4. DRUG, UNSPECIFIED [Concomitant]
     Indication: THYROID DISORDER
  5. OTHER RESPIRATORY SYSTEM PRODUCTS [Concomitant]
  6. MIRTAZAPINE [Concomitant]
  7. ALL OTHER THERAPEUTIC PRODUCTS [Concomitant]
  8. KLONOPIN [Concomitant]
  9. ABILIFY [Concomitant]
  10. MUSCLE RELAXANTS [Concomitant]

REACTIONS (1)
  - TOBACCO WITHDRAWAL SYMPTOMS [None]
